FAERS Safety Report 16839547 (Version 4)
Quarter: 2020Q1

REPORT INFORMATION
  Report Type: Spontaneous
  Country: US (occurrence: US)
  Receive Date: 20190923
  Receipt Date: 20200320
  Transmission Date: 20200409
  Serious: Yes (Other)
  Sender: FDA-Public Use
  Company Number: US-PFIZER INC-2019407695

PATIENT
  Age: 33 Year
  Sex: Female

DRUGS (2)
  1. OXYCODONE [Concomitant]
     Active Substance: OXYCODONE
     Dosage: 15 MG, 4X/DAY (EVERY 6 HOURS)
  2. XELJANZ [Suspect]
     Active Substance: TOFACITINIB CITRATE
     Dosage: 5 MG, UNK
     Dates: start: 201907

REACTIONS (9)
  - Diarrhoea [Unknown]
  - Pyrexia [Unknown]
  - Immune system disorder [Unknown]
  - Cellulitis [Unknown]
  - Abdominal pain upper [Unknown]
  - Abdominal discomfort [Unknown]
  - Nausea [Unknown]
  - Malaise [Unknown]
  - Herpes zoster [Unknown]
